FAERS Safety Report 12250053 (Version 2)
Quarter: 2016Q2

REPORT INFORMATION
  Report Type: Spontaneous
  Country: NL (occurrence: NL)
  Receive Date: 20160408
  Receipt Date: 20160413
  Transmission Date: 20160815
  Serious: Yes (Death, Hospitalization, Other)
  Sender: FDA-Public Use
  Company Number: NL-PFIZER INC-2016199180

PATIENT
  Age: 68 Year
  Sex: Male

DRUGS (1)
  1. SOMAVERT [Suspect]
     Active Substance: PEGVISOMANT
     Indication: ACROMEGALY
     Dosage: 20 MG, 1X/DAY
     Route: 058
     Dates: start: 20050331

REACTIONS (5)
  - Colon cancer [Fatal]
  - Asthenia [Unknown]
  - Toxicity to various agents [Fatal]
  - Fracture [Unknown]
  - Pneumonia [Unknown]
